FAERS Safety Report 13862484 (Version 2)
Quarter: 2018Q1

REPORT INFORMATION
  Report Type: Report from Study
  Country: BR (occurrence: BR)
  Receive Date: 20170813
  Receipt Date: 20180128
  Transmission Date: 20180508
  Serious: Yes (Death, Hospitalization)
  Sender: FDA-Public Use
  Company Number: PHHY2017BR118220

PATIENT
  Sex: Female
  Weight: 67 kg

DRUGS (2)
  1. XOLAIR [Suspect]
     Active Substance: OMALIZUMAB
     Indication: PRODUCT USED FOR UNKNOWN INDICATION
     Route: 065
  2. FORASEQ [Suspect]
     Active Substance: BUDESONIDE\FORMOTEROL FUMARATE
     Indication: EMPHYSEMA
     Dosage: 1 DF, BID (BUDESONIDE 400 UG, FORMOTEROL FUMARATE 12 UG)
     Route: 055

REACTIONS (7)
  - Infection [Fatal]
  - Peripheral swelling [Recovered/Resolved]
  - Renal failure [Not Recovered/Not Resolved]
  - Weight decreased [Recovering/Resolving]
  - Gait disturbance [Recovering/Resolving]
  - Decreased appetite [Recovering/Resolving]
  - Pallor [Unknown]
